FAERS Safety Report 8889823 (Version 2)
Quarter: 2012Q4

REPORT INFORMATION
  Report Type: 
  Country: US (occurrence: US)
  Receive Date: 20121107
  Receipt Date: 20121114
  Transmission Date: 20130627
  Serious: No
  Sender: FDA-Public Use
  Company Number: US-ACTELION-A-NJ2012-73753

PATIENT
  Age: 44 Year
  Sex: Female

DRUGS (7)
  1. TRACLEER [Suspect]
     Indication: PULMONARY HYPERTENSION
     Dosage: UNK
     Route: 048
     Dates: start: 201112
  2. REVATIO [Concomitant]
  3. DIGOXIN [Concomitant]
  4. LOVENOX [Concomitant]
  5. SYMBICORT [Concomitant]
  6. PROTONIX [Concomitant]
  7. ENALAPRIL [Concomitant]

REACTIONS (1)
  - Acne [Recovering/Resolving]
